FAERS Safety Report 6062487-0 (Version None)
Quarter: 2009Q1

REPORT INFORMATION
  Report Type: 
  Country: None (occurrence: None)
  Receive Date: 20090202
  Receipt Date: 20090202
  Transmission Date: 20090719
  Serious: Yes (Hospitalization)
  Sender: FDA-Public Use
  Company Number: None

PATIENT
  Age: 26 Year
  Sex: Female
  Weight: 54.4316 kg

DRUGS (1)
  1. MACROBID [Suspect]
     Indication: URINARY TRACT INFECTION
     Dosage: 2 CAPSULES TWICE DAILY 2 TIMES DAILY PO
     Route: 048
     Dates: start: 20061221, end: 20061223

REACTIONS (8)
  - CHEST PAIN [None]
  - COUGH [None]
  - DEHYDRATION [None]
  - DYSPNOEA [None]
  - FATIGUE [None]
  - PAIN [None]
  - PNEUMONIA [None]
  - PYREXIA [None]
